FAERS Safety Report 6741531-9 (Version None)
Quarter: 2010Q2

REPORT INFORMATION
  Report Type: 
  Country: None (occurrence: None)
  Receive Date: 20100526
  Receipt Date: 20100517
  Transmission Date: 20101027
  Serious: Yes (Death)
  Sender: FDA-Public Use
  Company Number: GB-ABBOTT-10P-167-0645722-00

PATIENT
  Age: 41 Year
  Sex: Male

DRUGS (2)
  1. EPILIM CHRONO [Suspect]
     Indication: EPILEPSY
     Route: 048
     Dates: end: 19960101
  2. CLOZARIL [Suspect]
     Indication: SCHIZOPHRENIA
     Dates: start: 19950209

REACTIONS (2)
  - H1N1 INFLUENZA [None]
  - UNRESPONSIVE TO STIMULI [None]
